FAERS Safety Report 21518768 (Version 2)
Quarter: 2022Q4

REPORT INFORMATION
  Report Type: Spontaneous
  Country: US (occurrence: US)
  Receive Date: 20221028
  Receipt Date: 20221117
  Transmission Date: 20230113
  Serious: Yes (Hospitalization, Other)
  Sender: FDA-Public Use
  Company Number: US-BRISTOL-MYERS SQUIBB COMPANY-2022-127745

PATIENT
  Age: 86 Year
  Sex: Female

DRUGS (15)
  1. ELIQUIS [Suspect]
     Active Substance: APIXABAN
     Indication: Cerebrovascular accident prophylaxis
     Route: 048
     Dates: start: 20210730, end: 20220606
  2. VENTOLIN HFA [Concomitant]
     Active Substance: ALBUTEROL SULFATE
     Indication: Dyspnoea
     Route: 048
  3. ASPIRIN [Concomitant]
     Active Substance: ASPIRIN
     Indication: Product used for unknown indication
     Route: 048
     Dates: end: 20220606
  4. FIORICET WITH CODEINE [Concomitant]
     Active Substance: ACETAMINOPHEN\BUTALBITAL\CAFFEINE\CODEINE PHOSPHATE
     Indication: Headache
     Dosage: 50-325-40-30 MG
     Route: 048
  5. COREG [Concomitant]
     Active Substance: CARVEDILOL
     Indication: Product used for unknown indication
     Dosage: TAKE 1 TABLET (6.25 MG) BY MOUTH IN THE MORNING AND 1 TABLET (6.25 MG) IN THE EVENING. TAKE WITH MEA
     Route: 048
  6. VITAMIN D3 [Concomitant]
     Active Substance: CHOLECALCIFEROL
     Indication: Product used for unknown indication
     Dosage: 1000 UNITS
     Route: 048
  7. PROVENTIL [Concomitant]
     Active Substance: ALBUTEROL
     Indication: Dyspnoea
     Route: 048
  8. PROAIR HFA [Concomitant]
     Active Substance: ALBUTEROL SULFATE
     Indication: Dyspnoea
     Route: 048
  9. PRINIVIL [Concomitant]
     Active Substance: LISINOPRIL
     Indication: Product used for unknown indication
     Route: 048
  10. OMEPRAZOLE [Concomitant]
     Active Substance: OMEPRAZOLE
     Dosage: TAKE 1 DELAYED REALEASE ENTERIC COATED TABLET (40 MG) BY MOUTH ONCE DAILY BEFORE A MEAL
     Route: 048
  11. FERROUS SULFATE [Concomitant]
     Active Substance: FERROUS SULFATE
     Indication: Product used for unknown indication
     Dosage: TAKE 1 DEALYED RELEASE TABLET (325 MG) BY MOUTH ONCE DAILY WITH A MEAL. ?325 MG (65 MG IRON)
     Route: 048
  12. LASIX [Concomitant]
     Active Substance: FUROSEMIDE
     Indication: Product used for unknown indication
     Dosage: TAKE TWO TABLETS BY MOUTH EVERY MORNING AND IF WEIGHT IS ABOVE 120 LBS TAKE ONE TABLET AT NOON UNTIL
     Route: 048
  13. ZESTRIL [Concomitant]
     Active Substance: LISINOPRIL
     Indication: Product used for unknown indication
     Route: 048
  14. INCRUSE ELLIPTA [Concomitant]
     Active Substance: UMECLIDINIUM BROMIDE
     Indication: Product used for unknown indication
     Dosage: INHALE 1 PUFF BY MOUTH ONCE MCG/ACTUATION DAILY. DISCARD INHALER 6 WEEKS ?AFTER OPENING OR WHEN THE
     Route: 048
  15. DUONEB [Concomitant]
     Active Substance: ALBUTEROL SULFATE\IPRATROPIUM BROMIDE
     Indication: Product used for unknown indication
     Dosage: NEBULIZER, DISPOSABLE NEB KIT X 4, RE USEABLE NEB KIT FOR 1, MASK FOR L, FILTERS FOR 1. FREQUENCY OF

REACTIONS (1)
  - Gastrointestinal haemorrhage [Recovered/Resolved]

NARRATIVE: CASE EVENT DATE: 20220606
